FAERS Safety Report 8121625-6 (Version None)
Quarter: 2012Q1

REPORT INFORMATION
  Report Type: 
  Country: None (occurrence: None)
  Receive Date: 20120208
  Receipt Date: 20120208
  Transmission Date: 20120608
  Serious: Yes (Death, Life-Threatening, Hospitalization, Congenital Anomaly, Other)
  Sender: FDA-Public Use
  Company Number: None

PATIENT
  Age: 8 Year
  Sex: Male
  Weight: 21.772 kg

DRUGS (1)
  1. VERAPAMIL [Suspect]
     Indication: SUPRAVENTRICULAR TACHYCARDIA
     Dosage: 100.0 MG
     Route: 048
     Dates: start: 20110913, end: 20110923

REACTIONS (6)
  - SUPRAVENTRICULAR TACHYCARDIA [None]
  - LETHARGY [None]
  - EXTRASYSTOLES [None]
  - DRUG TOLERANCE [None]
  - ABDOMINAL PAIN [None]
  - OXYGEN SATURATION DECREASED [None]
